FAERS Safety Report 14762795 (Version 1)
Quarter: 2018Q2

REPORT INFORMATION
  Report Type: Spontaneous
  Country: US (occurrence: US)
  Receive Date: 20180416
  Receipt Date: 20180416
  Transmission Date: 20180711
  Serious: No
  Sender: FDA-Public Use
  Company Number: US-PFIZER INC-2018148210

PATIENT
  Age: 16 Year
  Sex: Male

DRUGS (1)
  1. GENOTROPIN [Suspect]
     Active Substance: SOMATROPIN
     Indication: HYPOTHALAMO-PITUITARY DISORDER
     Dosage: 1.8MG DELIVERED BY SUBCUTANEOUS INJECTION WITH GENOTROPIN PEN 12 ONCE DAILY
     Route: 058

REACTIONS (4)
  - Injection site pain [Unknown]
  - Liquid product physical issue [Unknown]
  - Incorrect dosage administered [Unknown]
  - Device issue [Unknown]
